FAERS Safety Report 10167641 (Version 1)
Quarter: 2014Q2

REPORT INFORMATION
  Report Type: Report from Study
  Country: CO (occurrence: CO)
  Receive Date: 20140512
  Receipt Date: 20140512
  Transmission Date: 20141212
  Serious: Yes (Hospitalization, Disabling, Other)
  Sender: FDA-Public Use
  Company Number: CO-BRISTOL-MYERS SQUIBB COMPANY-20728820

PATIENT
  Age: 66 Year
  Sex: Male
  Weight: 48 kg

DRUGS (1)
  1. ERBITUX SOLN FOR INF [Suspect]
     Route: 042
     Dates: start: 20140303, end: 20140430

REACTIONS (5)
  - Inflammation [Unknown]
  - Metastasis [Unknown]
  - Neck mass [Unknown]
  - Dysphagia [Unknown]
  - Aphasia [Unknown]
